FAERS Safety Report 13887088 (Version 1)
Quarter: 2017Q3

REPORT INFORMATION
  Report Type: Spontaneous
  Country: US (occurrence: US)
  Receive Date: 20170821
  Receipt Date: 20170821
  Transmission Date: 20171127
  Serious: Yes (Other)
  Sender: FDA-Public Use
  Company Number: US-BAYER-2017-155317

PATIENT
  Sex: Female

DRUGS (1)
  1. BAYER ASPIRIN 500 MG [Suspect]
     Active Substance: ASPIRIN
     Dosage: UNK
     Dates: start: 1991

REACTIONS (2)
  - Abdominal discomfort [Unknown]
  - Gastric haemorrhage [Unknown]
